FAERS Safety Report 6582877-7 (Version None)
Quarter: 2010Q1

REPORT INFORMATION
  Report Type: 
  Country: None (occurrence: None)
  Receive Date: 20100203
  Receipt Date: 20100119
  Transmission Date: 20100710
  Serious: Yes (Hospitalization)
  Sender: FDA-Public Use
  Company Number: 2010000265

PATIENT
  Age: 76 Year

DRUGS (3)
  1. ERLOTINIB HYDROCHLORIDE [Suspect]
     Indication: LUNG ADENOCARCINOMA
     Dosage: (50 MG), ORAL
     Route: 048
     Dates: start: 20090625
  2. BEVACIZUMAB (INJECTION FOR INFUSION) [Suspect]
     Indication: LUNG ADENOCARCINOMA
     Dosage: (15 MG/KG), INTRAVENOUS
     Route: 042
     Dates: start: 20090625
  3. COUMADIN [Suspect]

REACTIONS (11)
  - BLOOD ALBUMIN DECREASED [None]
  - BLOOD CALCIUM DECREASED [None]
  - DECREASED APPETITE [None]
  - DEHYDRATION [None]
  - ENTEROCOLITIS INFECTIOUS [None]
  - FAILURE TO THRIVE [None]
  - HAEMOGLOBIN DECREASED [None]
  - HYPERTENSION [None]
  - INTERNATIONAL NORMALISED RATIO ABNORMAL [None]
  - PSEUDOMEMBRANOUS COLITIS [None]
  - STAPHYLOCOCCAL INFECTION [None]
